FAERS Safety Report 8336725-5 (Version None)
Quarter: 2012Q2

REPORT INFORMATION
  Report Type: 
  Country: None (occurrence: None)
  Receive Date: 20120504
  Receipt Date: 20100607
  Transmission Date: 20120825
  Serious: No
  Sender: FDA-Public Use
  Company Number: US-TEVA-2010003126

PATIENT
  Sex: Female
  Weight: 99.88 kg

DRUGS (7)
  1. METFORMIN HCL [Concomitant]
     Indication: DIABETES MELLITUS
  2. INSULIN [Concomitant]
     Indication: DIABETES MELLITUS
  3. NUVIGIL [Suspect]
     Indication: NARCOLEPSY
     Dosage: 125 MILLIGRAM;
     Route: 048
     Dates: start: 20100606
  4. CYMBALTA [Concomitant]
     Route: 048
  5. LISINOPRIL [Concomitant]
     Indication: BLOOD PRESSURE ABNORMAL
     Route: 048
  6. PROTONIX [Concomitant]
     Indication: GALLBLADDER DISORDER
  7. PRAVASTATIN [Concomitant]
     Indication: BLOOD CHOLESTEROL ABNORMAL
     Route: 048

REACTIONS (1)
  - DRUG INEFFECTIVE [None]
